FAERS Safety Report 5923919-9 (Version None)
Quarter: 2008Q4

REPORT INFORMATION
  Report Type: 
  Country: None (occurrence: None)
  Receive Date: 20081015
  Receipt Date: 20081002
  Transmission Date: 20090506
  Serious: Yes (Disabling)
  Sender: FDA-Public Use
  Company Number: OSCN-PR-0801S-0016

PATIENT

DRUGS (3)
  1. GADOLINIUM (UNSPECIFIED) [Suspect]
     Indication: VON HIPPEL-LINDAU DISEASE
     Dosage: 15 ADMINISTRATIONS
  2. EPOGEN [Concomitant]
  3. DARBEPOIETIN [Concomitant]

REACTIONS (3)
  - MUSCLE CONTRACTURE [None]
  - NEPHROGENIC SYSTEMIC FIBROSIS [None]
  - RENAL TRANSPLANT [None]
